FAERS Safety Report 7394420-3 (Version None)
Quarter: 2011Q2

REPORT INFORMATION
  Report Type: 
  Country: None (occurrence: None)
  Receive Date: 20110405
  Receipt Date: 20110322
  Transmission Date: 20111010
  Serious: Yes (Other)
  Sender: FDA-Public Use
  Company Number: PHHY2011US23859

PATIENT
  Sex: Male

DRUGS (5)
  1. JANUVIA [Concomitant]
  2. LIPITOR [Concomitant]
  3. GLYBURIDE [Concomitant]
  4. FISH OIL [Concomitant]
  5. DIOVAN [Suspect]
     Dosage: 160 MG, QD

REACTIONS (5)
  - LOSS OF CONSCIOUSNESS [None]
  - HYPOTENSION [None]
  - OXYGEN CONSUMPTION DECREASED [None]
  - URTICARIA [None]
  - CHILLS [None]
